FAERS Safety Report 10902793 (Version 2)
Quarter: 2015Q1

REPORT INFORMATION
  Report Type: Spontaneous
  Country: SE (occurrence: SE)
  Receive Date: 20150310
  Receipt Date: 20150323
  Transmission Date: 20150721
  Serious: Yes (Death, Life-Threatening, Hospitalization, Other)
  Sender: FDA-Public Use
  Company Number: SE-BRISTOL-MYERS SQUIBB COMPANY-BMS-2015-012575

PATIENT

DRUGS (2)
  1. HYDREA [Concomitant]
     Active Substance: HYDROXYUREA
     Indication: POLYCYTHAEMIA VERA
     Dosage: 500 MG, UNK
     Route: 065
  2. ELIQUIS [Suspect]
     Active Substance: APIXABAN
     Indication: CEREBROVASCULAR ACCIDENT PROPHYLAXIS
     Dosage: 2.5 MG, BID
     Route: 048
     Dates: start: 20141104, end: 20150107

REACTIONS (9)
  - Fatigue [Fatal]
  - Cerebral thrombosis [Unknown]
  - Decreased appetite [Fatal]
  - General physical health deterioration [Unknown]
  - Chest pain [Unknown]
  - Fall [Unknown]
  - Urinary tract infection [Unknown]
  - Pollakiuria [Fatal]
  - Cachexia [Fatal]

NARRATIVE: CASE EVENT DATE: 200501
